FAERS Safety Report 8080634-6 (Version None)
Quarter: 2012Q1

REPORT INFORMATION
  Report Type: 
  Country: None (occurrence: None)
  Receive Date: 20120130
  Receipt Date: 20120124
  Transmission Date: 20120608
  Serious: Yes (Life-Threatening, Hospitalization)
  Sender: FDA-Public Use
  Company Number: CH-ROCHE-1010579

PATIENT
  Age: 54 Year
  Sex: Female

DRUGS (8)
  1. PEMETREXED DISODIUM [Suspect]
     Indication: LUNG ADENOCARCINOMA METASTATIC
     Dosage: AST DOSE PRIOR TO SAE: 12/DEC/2011, PERMANENTLY DISCONTINUED
     Route: 042
     Dates: start: 20111011
  2. METOCLOPRAMIDE HYDROCHLORIDE [Concomitant]
     Route: 048
  3. LEVOFLOXACIN [Concomitant]
     Route: 048
     Dates: start: 20111007, end: 20111018
  4. CISPLATIN [Suspect]
     Indication: LUNG ADENOCARCINOMA METASTATIC
     Dosage: LAST DOSE PRIOR TO SAE: 12/DEC/2011
     Route: 042
     Dates: start: 20111011
  5. LORAZEPAM [Concomitant]
     Route: 042
  6. AUGMENTIN '125' [Concomitant]
     Dates: start: 20111019
  7. AVASTIN [Suspect]
     Indication: LUNG ADENOCARCINOMA METASTATIC
     Dosage: LAST DOSE PRIOR TO SAE: 12/DEC/2011, PERMANENTLY DISCONTINUED
     Route: 042
     Dates: start: 20111011
  8. ARMODAFINIL [Concomitant]
     Dates: start: 20111018, end: 20111018

REACTIONS (3)
  - PRESYNCOPE [None]
  - LOSS OF CONSCIOUSNESS [None]
  - HYPOTHERMIA [None]
